FAERS Safety Report 4931468-X (Version None)
Quarter: 2006Q1

REPORT INFORMATION
  Report Type: 
  Country: None (occurrence: None)
  Receive Date: 20060301
  Receipt Date: 20060215
  Transmission Date: 20060701
  Serious: Yes (Other)
  Sender: FDA-Public Use
  Company Number: 2006024322

PATIENT
  Sex: Male
  Weight: 136.0791 kg

DRUGS (8)
  1. VIAGRA [Suspect]
     Indication: ERECTILE DYSFUNCTION
     Dosage: ORAL
     Route: 048
  2. CAVERJECT [Suspect]
     Indication: ERECTILE DYSFUNCTION
  3. PRILOSEC [Concomitant]
  4. ZOCOR [Concomitant]
  5. ZESTRIL [Concomitant]
  6. ACETAMINOPHEN [Concomitant]
  7. IBUPROFEN [Concomitant]
  8. ASPIRIN [Concomitant]

REACTIONS (6)
  - BARRETT'S OESOPHAGUS [None]
  - CYANOPSIA [None]
  - DRUG INEFFECTIVE [None]
  - PENILE PAIN [None]
  - WEIGHT INCREASED [None]
  - WRONG TECHNIQUE IN DRUG USAGE PROCESS [None]
